FAERS Safety Report 5969894-2 (Version None)
Quarter: 2008Q4

REPORT INFORMATION
  Report Type: 
  Country: None (occurrence: None)
  Receive Date: 20081126
  Receipt Date: 20081114
  Transmission Date: 20090506
  Serious: Yes (Hospitalization)
  Sender: FDA-Public Use
  Company Number: US-PFIZER INC-2008096656

PATIENT
  Sex: Male
  Weight: 89.8 kg

DRUGS (9)
  1. SUTENT [Suspect]
     Indication: RENAL CELL CARCINOMA
     Route: 048
     Dates: start: 20070301
  2. ERLOTINIB [Suspect]
     Indication: RENAL CELL CARCINOMA
     Route: 048
     Dates: start: 20070301
  3. AMLODIPINE/OLMESARTAN MEDOXOMIL [Concomitant]
     Dosage: TEXT:10-40 MG
     Route: 048
  4. ACETAMINOPHEN [Concomitant]
     Route: 048
  5. ACETYLSALICYLIC ACID SRT [Concomitant]
     Route: 048
  6. ESOMEPRAZOLE MAGNESIUM [Concomitant]
     Route: 048
  7. LEVOTHYROXINE SODIUM [Concomitant]
     Route: 048
  8. METOPROLOL TARTRATE [Concomitant]
     Route: 048
  9. VITAMIN CAP [Concomitant]
     Route: 048

REACTIONS (3)
  - BILIARY DILATATION [None]
  - GALLBLADDER DISORDER [None]
  - LIPASE INCREASED [None]
